FAERS Safety Report 5458033-2 (Version None)
Quarter: 2007Q3

REPORT INFORMATION
  Report Type: 
  Country: None (occurrence: None)
  Receive Date: 20070919
  Receipt Date: 20070908
  Transmission Date: 20080115
  Serious: Yes (Other)
  Sender: FDA-Public Use
  Company Number: PHBS2007BR14659

PATIENT
  Age: 71 Year
  Sex: Female
  Weight: 70 kg

DRUGS (6)
  1. DIOVAN [Suspect]
     Indication: HYPERTENSION
     Dosage: 80 MG/DAY
     Route: 048
  2. DIOVAN [Suspect]
     Dosage: 80 MG, BID
     Route: 048
     Dates: start: 20070830
  3. OMEPRAZOLE [Concomitant]
     Indication: GASTRITIS
     Dosage: 1 TABLET/DAY
     Route: 048
     Dates: start: 20020101
  4. VERAPAMIL [Concomitant]
     Dosage: 80 MG, TID
     Route: 048
     Dates: start: 20020101
  5. DAFLON [Concomitant]
     Dosage: 500 MG, QD
     Route: 048
  6. METFORMIN HCL [Concomitant]
     Indication: BLOOD GLUCOSE INCREASED
     Dosage: 500 MG, BID
     Route: 048
     Dates: start: 20070801

REACTIONS (14)
  - AORTIC CALCIFICATION [None]
  - ARTHRALGIA [None]
  - ARTHROPATHY [None]
  - BLOOD GLUCOSE INCREASED [None]
  - BLOOD PRESSURE INCREASED [None]
  - DRUG INEFFECTIVE [None]
  - HEADACHE [None]
  - JOINT INJURY [None]
  - KNEE OPERATION [None]
  - MUSCLE ATROPHY [None]
  - NAUSEA [None]
  - THYROID OPERATION [None]
  - VARICOSE VEIN OPERATION [None]
  - VISUAL DISTURBANCE [None]
